FAERS Safety Report 7591501-6 (Version None)
Quarter: 2011Q2

REPORT INFORMATION
  Report Type: 
  Country: None (occurrence: None)
  Receive Date: 20110627
  Receipt Date: 20110613
  Transmission Date: 20111010
  Serious: Yes (Death, Disabling)
  Sender: FDA-Public Use
  Company Number: 2011-1839

PATIENT
  Age: 69 Year
  Sex: Male

DRUGS (7)
  1. SOMATULINE AUTOGEL (LANREOTIDE AUTOGEL) (LANREOTIDE) (LANREOTIDE ACETA [Suspect]
     Indication: ACROMEGALY
     Dosage: 120MG (120 MG, 1 IN 28 D), SUBCUTANEOUS
     Route: 058
     Dates: start: 20100801
  2. SYNTHROID [Concomitant]
  3. CORTISONE (CORTISONE) [Concomitant]
  4. PAIN MEDICATION (MENTHOL W/METHYL SALICYLATE) [Concomitant]
  5. DEXAMETHASONE [Concomitant]
  6. FENTANYL [Concomitant]
  7. BLOOD PRESSURE MEDICATION (ALL OTHER THERAPEUTIC PRODUCTS) [Concomitant]

REACTIONS (3)
  - NEOPLASM PROGRESSION [None]
  - BLINDNESS [None]
  - PITUITARY CANCER METASTATIC [None]
